FAERS Safety Report 18927680 (Version 1)
Quarter: 2021Q1

REPORT INFORMATION
  Report Type: Other
  Country: DK (occurrence: DK)
  Receive Date: 20210223
  Receipt Date: 20210223
  Transmission Date: 20210420
  Serious: Yes (Hospitalization, Other)
  Sender: FDA-Public Use
  Company Number: DK-ALNYLAM PHARMACEUTICALS, INC.-ALN-2021-000418

PATIENT

DRUGS (1)
  1. ONPATTRO [Suspect]
     Active Substance: PATISIRAN SODIUM
     Indication: HEREDITARY NEUROPATHIC AMYLOIDOSIS
     Dosage: UNK MILLIGRAM PER MILLILITRE
     Route: 042
     Dates: start: 20201123

REACTIONS (1)
  - Cerebrovascular accident [Recovering/Resolving]
